FAERS Safety Report 6654683-6 (Version None)
Quarter: 2010Q1

REPORT INFORMATION
  Report Type: 
  Country: None (occurrence: None)
  Receive Date: 20100326
  Receipt Date: 20100323
  Transmission Date: 20100710
  Serious: Yes (Hospitalization)
  Sender: FDA-Public Use
  Company Number: FR-MERCK-1003FRA00082

PATIENT
  Age: 53 Year
  Sex: Male

DRUGS (5)
  1. ISENTRESS [Suspect]
     Indication: HIV INFECTION
     Route: 048
     Dates: start: 20100104, end: 20100120
  2. ISENTRESS [Suspect]
     Route: 048
     Dates: start: 20100211, end: 20100214
  3. FOCETRIA H1N1 [Suspect]
     Indication: PROPHYLAXIS
     Route: 058
     Dates: start: 20091205, end: 20091205
  4. INTELENCE [Suspect]
     Indication: HIV INFECTION
     Route: 048
     Dates: start: 20100104, end: 20100120
  5. INTELENCE [Suspect]
     Route: 048
     Dates: start: 20100211, end: 20100214

REACTIONS (3)
  - NEUROPATHY PERIPHERAL [None]
  - PARAESTHESIA [None]
  - TREMOR [None]
